FAERS Safety Report 7201999-0 (Version None)
Quarter: 2010Q4

REPORT INFORMATION
  Report Type: 
  Country: None (occurrence: None)
  Receive Date: 20101229
  Receipt Date: 20101216
  Transmission Date: 20110411
  Serious: Yes (Hospitalization)
  Sender: FDA-Public Use
  Company Number: US-WATSON-2010-16463

PATIENT
  Age: 47 Year
  Sex: Male

DRUGS (1)
  1. VERAPAMIL HCL [Suspect]
     Indication: INTENTIONAL OVERDOSE
     Dosage: 6 G, SINGLE
     Route: 048

REACTIONS (3)
  - ATRIOVENTRICULAR BLOCK COMPLETE [None]
  - HYPOTENSION [None]
  - INTENTIONAL OVERDOSE [None]
